FAERS Safety Report 7688304-0 (Version None)
Quarter: 2011Q3

REPORT INFORMATION
  Report Type: 
  Country: None (occurrence: None)
  Receive Date: 20110817
  Receipt Date: 20100928
  Transmission Date: 20111222
  Serious: No
  Sender: FDA-Public Use
  Company Number: US-KINGPHARMUSA00001-K201001216

PATIENT
  Age: 54 Year
  Sex: Female
  Weight: 77.098 kg

DRUGS (3)
  1. LEVOXYL [Suspect]
     Dosage: 200 MCG, QD
     Route: 048
     Dates: start: 20100926
  2. CYTOMEL [Suspect]
     Indication: HYPOTHYROIDISM
     Dosage: 5 MCG, QD
     Route: 048
     Dates: start: 20100918, end: 20100922
  3. LEVOXYL [Suspect]
     Indication: HYPOTHYROIDISM
     Dosage: 200 MCG, QD
     Route: 048
     Dates: end: 20100922

REACTIONS (5)
  - CHEST PAIN [None]
  - BLOOD PRESSURE INCREASED [None]
  - HEART RATE INCREASED [None]
  - BLOOD THYROID STIMULATING HORMONE DECREASED [None]
  - PSYCHOMOTOR HYPERACTIVITY [None]
